FAERS Safety Report 16667605 (Version 1)
Quarter: 2019Q3

REPORT INFORMATION
  Report Type: Spontaneous
  Country: CA (occurrence: CA)
  Receive Date: 20190805
  Receipt Date: 20190805
  Transmission Date: 20191004
  Serious: Yes (Hospitalization)
  Sender: FDA-Public Use
  Company Number: CA-PFIZER INC-2019329728

PATIENT
  Age: 78 Year
  Sex: Female
  Weight: 53 kg

DRUGS (4)
  1. FUROSEMIDE [FUROSEMIDE SODIUM] [Concomitant]
     Dosage: UNK
  2. MEROPENEM. [Suspect]
     Active Substance: MEROPENEM
     Indication: PNEUMONIA
     Dosage: 1 G, 2X/DAY
     Route: 042
  3. MEROPENEM. [Suspect]
     Active Substance: MEROPENEM
     Dosage: 2 G, 2X/DAY
     Route: 042
  4. FUROSEMIDE [FUROSEMIDE SODIUM] [Concomitant]
     Dosage: UNK
     Route: 030

REACTIONS (1)
  - Liver function test increased [Recovering/Resolving]
